FAERS Safety Report 14006672 (Version 2)
Quarter: 2017Q4

REPORT INFORMATION
  Report Type: Spontaneous
  Country: TR (occurrence: TR)
  Receive Date: 20170925
  Receipt Date: 20171115
  Transmission Date: 20180321
  Serious: Yes (Other)
  Sender: FDA-Public Use
  Company Number: TR-009507513-1707TUR005655

PATIENT
  Age: 62 Year
  Sex: Male
  Weight: 125 kg

DRUGS (3)
  1. BRIDION [Suspect]
     Active Substance: SUGAMMADEX
     Dosage: 200 MG, UNK
     Route: 042
  2. ARVELES [Concomitant]
     Active Substance: DEXKETOPROFEN
  3. BRIDION [Suspect]
     Active Substance: SUGAMMADEX
     Indication: SURGERY
     Dosage: 3 MG/KG, UNK
     Route: 042

REACTIONS (2)
  - Drug ineffective [Recovered/Resolved]
  - Respiratory arrest [Recovered/Resolved]
